FAERS Safety Report 17657990 (Version 2)
Quarter: 2020Q4

REPORT INFORMATION
  Report Type: Spontaneous
  Country: CA (occurrence: CA)
  Receive Date: 20200411
  Receipt Date: 20201013
  Transmission Date: 20210113
  Serious: Yes (Other)
  Sender: FDA-Public Use
  Company Number: CA-SAMSUNG BIOEPIS-SB-2020-12071

PATIENT
  Age: 52 Year
  Sex: Female

DRUGS (6)
  1. INFLIXIMAB [Suspect]
     Active Substance: INFLIXIMAB
     Indication: CROHN^S DISEASE
     Route: 042
  2. FOLIC ACID. [Concomitant]
     Active Substance: FOLIC ACID
     Indication: PRODUCT USED FOR UNKNOWN INDICATION
     Route: 048
  3. HYDROCORTISONE. [Concomitant]
     Active Substance: HYDROCORTISONE
     Indication: PREMEDICATION
     Route: 042
  4. CODEINE/CODEINE SULFATE [Concomitant]
     Active Substance: CODEINE SULFATE
     Indication: DIARRHOEA
     Route: 065
  5. METHOTREXATE. [Concomitant]
     Active Substance: METHOTREXATE
     Indication: PRODUCT USED FOR UNKNOWN INDICATION
     Route: 058
  6. LEVOTHYROXINE. [Concomitant]
     Active Substance: LEVOTHYROXINE
     Indication: PRODUCT USED FOR UNKNOWN INDICATION
     Dosage: UNKNOWN
     Route: 065

REACTIONS (11)
  - Condition aggravated [Unknown]
  - Eye pain [Unknown]
  - Rash [Unknown]
  - Eye disorder [Unknown]
  - Heart rate decreased [Unknown]
  - Somnolence [Unknown]
  - Arthralgia [Unknown]
  - Lower respiratory tract infection [Unknown]
  - Photophobia [Unknown]
  - Ocular hyperaemia [Unknown]
  - Fatigue [Unknown]
